FAERS Safety Report 10489691 (Version 7)
Quarter: 2019Q3

REPORT INFORMATION
  Report Type: Report from Study
  Country: GB (occurrence: GB)
  Receive Date: 20141002
  Receipt Date: 20190905
  Transmission Date: 20191004
  Serious: Yes (Hospitalization, Other)
  Sender: FDA-Public Use
  Company Number: PHHY2014GB128617

PATIENT
  Age: 33 Year
  Sex: Male
  Weight: 72.9 kg

DRUGS (18)
  1. OMNITROPE [Suspect]
     Active Substance: SOMATROPIN
     Indication: GROWTH HORMONE DEFICIENCY
     Dosage: 0.4 MG, QD (5 MG/1.5 ML SOLUTION FOR INJECTION)
     Route: 058
     Dates: start: 20090401, end: 20160531
  2. NAPROXEN. [Concomitant]
     Active Substance: NAPROXEN
     Indication: PAIN
     Dosage: 500 MG, BID
     Route: 048
  3. INSULIN [Concomitant]
     Active Substance: INSULIN NOS
     Indication: TYPE 2 DIABETES MELLITUS
     Dosage: UNK
     Route: 058
     Dates: start: 2006
  4. METFORMIN [Concomitant]
     Active Substance: METFORMIN HYDROCHLORIDE
     Indication: TYPE 2 DIABETES MELLITUS
     Dosage: UNK
     Route: 048
     Dates: start: 20100317
  5. TESTOGEL [Concomitant]
     Active Substance: TESTOSTERONE
     Indication: RADIOTHERAPY
     Dosage: UNK
     Route: 061
     Dates: start: 1997, end: 20100308
  6. THYROXINE [Concomitant]
     Active Substance: LEVOTHYROXINE
     Indication: RADIOTHERAPY
     Dosage: UNK
     Route: 048
     Dates: start: 198611
  7. PRAVASTATIN. [Concomitant]
     Active Substance: PRAVASTATIN
     Indication: PROPHYLAXIS
     Dosage: UNK
     Route: 048
     Dates: start: 2004
  8. ADCAL [Concomitant]
     Indication: VITAMIN D DECREASED
     Dosage: UNK
     Route: 048
     Dates: start: 20090420
  9. NEBIDO [Concomitant]
     Active Substance: TESTOSTERONE UNDECANOATE
     Indication: FOLLICLE STIMULATING HORMONE DEFICIENCY
  10. THYROXINE [Concomitant]
     Active Substance: LEVOTHYROXINE
     Indication: SECONDARY HYPOTHYROIDISM
  11. HYDROCORTISON [Concomitant]
     Active Substance: HYDROCORTISONE
     Indication: RADIOTHERAPY
  12. NEBIDO [Concomitant]
     Active Substance: TESTOSTERONE UNDECANOATE
     Indication: LUTEINISING HORMONE DEFICIENCY
     Dosage: UNK
     Route: 030
     Dates: start: 20100308
  13. ORAMORPH [Concomitant]
     Active Substance: MORPHINE SULFATE
     Indication: BACK PAIN
     Dosage: 10 MG, PRN
     Route: 048
  14. CITALOPRAM [Concomitant]
     Active Substance: CITALOPRAM HYDROBROMIDE
     Indication: DEPRESSION
     Dosage: UNK
     Route: 048
     Dates: start: 2003
  15. PENICILLIN V [Concomitant]
     Active Substance: PENICILLIN V
     Indication: PROPHYLAXIS
     Dosage: UNK
     Route: 048
     Dates: start: 1987
  16. COCODAMOL [Concomitant]
     Active Substance: ACETAMINOPHEN\CODEINE PHOSPHATE
     Indication: BACK PAIN
     Route: 065
  17. HYDROCORTISON [Concomitant]
     Active Substance: HYDROCORTISONE
     Indication: ADRENOCORTICOTROPIC HORMONE DEFICIENCY
     Dosage: UNK
     Route: 048
     Dates: start: 20040518
  18. MEBEVERINE [Concomitant]
     Active Substance: MEBEVERINE
     Indication: IRRITABLE BOWEL SYNDROME
     Route: 048

REACTIONS (10)
  - Metastases to lymph nodes [Unknown]
  - Left ventricular failure [Recovering/Resolving]
  - Pulmonary oedema [Recovering/Resolving]
  - Papule [Not Recovered/Not Resolved]
  - Goitre [Unknown]
  - Neoplasm progression [Not Recovered/Not Resolved]
  - Pneumonia [Recovered/Resolved]
  - Breast cancer male [Not Recovered/Not Resolved]
  - Metastases to bone [Unknown]
  - Basal cell carcinoma [Not Recovered/Not Resolved]

NARRATIVE: CASE EVENT DATE: 200906
